FAERS Safety Report 18007467 (Version 1)
Quarter: 2020Q3

REPORT INFORMATION
  Report Type: Spontaneous
  Country: SE (occurrence: SE)
  Receive Date: 20200710
  Receipt Date: 20200710
  Transmission Date: 20201103
  Serious: Yes (Life-Threatening, Hospitalization)
  Sender: FDA-Public Use
  Company Number: SE-009507513-2007SWE002152

PATIENT
  Age: 35 Year
  Sex: Female

DRUGS (2)
  1. DESLORATADINE. [Suspect]
     Active Substance: DESLORATADINE
     Indication: SEASONAL ALLERGY
     Dosage: 5 MILLIGRAM, QD, TABLETS
     Route: 048
     Dates: start: 202002, end: 202005
  2. NIPAXON [Concomitant]
     Dosage: 15 MG

REACTIONS (1)
  - Hepatotoxicity [Recovering/Resolving]

NARRATIVE: CASE EVENT DATE: 20200519
